FAERS Safety Report 22375551 (Version 1)
Quarter: 2023Q2

REPORT INFORMATION
  Report Type: Spontaneous
  Country: US (occurrence: US)
  Receive Date: 20230527
  Receipt Date: 20230527
  Transmission Date: 20230722
  Serious: Yes (Hospitalization, Other)
  Sender: FDA-Public Use
  Company Number: US-SUN PHARMACEUTICAL INDUSTRIES LTD-2023R1-390681

PATIENT
  Age: 59 Year
  Sex: Female

DRUGS (1)
  1. CLOZAPINE [Suspect]
     Active Substance: CLOZAPINE
     Indication: Bipolar I disorder
     Dosage: 350 MILLIGRAM, DAILY
     Route: 065

REACTIONS (4)
  - Withdrawal catatonia [Recovered/Resolved]
  - Unresponsive to stimuli [Recovered/Resolved]
  - Psychomotor retardation [Recovered/Resolved]
  - Hypertonia [Recovered/Resolved]
